FAERS Safety Report 22331329 (Version 1)
Quarter: 2023Q2

REPORT INFORMATION
  Report Type: Spontaneous
  Country: US (occurrence: None)
  Receive Date: 20230515
  Receipt Date: 20230515
  Transmission Date: 20230721
  Serious: Yes (Other)
  Sender: FDA-Public Use
  Company Number: None

PATIENT
  Age: 79 Year
  Sex: Female
  Weight: 60.75 kg

DRUGS (4)
  1. OFLOXACIN [Suspect]
     Active Substance: OFLOXACIN
     Indication: Antibiotic prophylaxis
     Dosage: OTHER QUANTITY : 1 DROP(S);?FREQUENCY : 4 TIMES A DAY;?
     Route: 047
     Dates: start: 20220614, end: 20220730
  2. Hydroxyzine One 25 mg tablet per day for hives [Concomitant]
  3. Vaginal Hormone Cream 3 times per week [Concomitant]
  4. 1 multi vitamin for adults over 50 per day [Concomitant]

REACTIONS (1)
  - Corneal disorder [None]

NARRATIVE: CASE EVENT DATE: 20220614
